FAERS Safety Report 13601853 (Version 1)
Quarter: 2017Q2

REPORT INFORMATION
  Report Type: Spontaneous
  Country: US (occurrence: US)
  Receive Date: 20170601
  Receipt Date: 20170601
  Transmission Date: 20170830
  Serious: Yes (Other)
  Sender: FDA-Public Use
  Company Number: US-ASTRAZENECA-2017SE55884

PATIENT
  Age: 26497 Day
  Sex: Male
  Weight: 48.6 kg

DRUGS (7)
  1. ZETIA [Concomitant]
     Active Substance: EZETIMIBE
  2. CRESTOR [Concomitant]
     Active Substance: ROSUVASTATIN CALCIUM
     Dosage: 20.0MG UNKNOWN
  3. NEXIUM [Suspect]
     Active Substance: ESOMEPRAZOLE MAGNESIUM
     Dosage: 40.0MG UNKNOWN
     Route: 048
     Dates: start: 20131209
  4. NEXIUM [Suspect]
     Active Substance: ESOMEPRAZOLE MAGNESIUM
     Dosage: 40.0MG UNKNOWN
     Route: 048
     Dates: start: 20060411
  5. CEFADROXIL. [Concomitant]
     Active Substance: CEFADROXIL
     Dosage: 500.0MG UNKNOWN
  6. DIAZEPAM. [Concomitant]
     Active Substance: DIAZEPAM
     Dosage: 10.0MG UNKNOWN
  7. CIALIS [Concomitant]
     Active Substance: TADALAFIL
     Dosage: 20.0MG UNKNOWN

REACTIONS (5)
  - Sepsis [Unknown]
  - Acute kidney injury [Unknown]
  - Acute respiratory failure [Unknown]
  - Metabolic acidosis [Unknown]
  - Multiple organ dysfunction syndrome [Unknown]

NARRATIVE: CASE EVENT DATE: 20151103
